FAERS Safety Report 6355061-X (Version None)
Quarter: 2009Q3

REPORT INFORMATION
  Report Type: 
  Country: None (occurrence: None)
  Receive Date: 20090914
  Receipt Date: 20090909
  Transmission Date: 20100115
  Serious: Yes (Hospitalization)
  Sender: FDA-Public Use
  Company Number: FR-BRISTOL-MYERS SQUIBB COMPANY-14773675

PATIENT
  Age: 47 Year
  Sex: Female

DRUGS (14)
  1. REYATAZ [Suspect]
     Indication: HIV INFECTION
     Dates: start: 19990101
  2. PRAVASTATIN SODIUM [Suspect]
     Indication: HYPERCHOLESTEROLAEMIA
     Dosage: FOR MORE THAN 6 MONTHS
     Dates: start: 19990101
  3. KIVEXA [Suspect]
     Indication: HIV INFECTION
     Dosage: 1 DF = 600MG/300MG
     Dates: start: 19990101
  4. NORVIR [Suspect]
     Indication: HIV INFECTION
     Dosage: FOR MORE THAN 6 MONTHS
     Dates: start: 19990101
  5. LEVOTHYROXINE SODIUM [Concomitant]
     Dosage: 100 ?G THEN 75 ?G
  6. PLAVIX [Concomitant]
  7. LAROXYL [Concomitant]
     Dosage: LAROXYL ROCHE 1 DF = 40MG/ML FOR MORE THAN 6 MONTHS
  8. DIAZEPAM [Concomitant]
     Dosage: FOR MORE THAN 6 MONTHS
  9. SUBUTEX [Concomitant]
  10. LYRICA [Concomitant]
  11. NORSET [Concomitant]
     Dosage: FOR MORE THAN 6 MONTHS
  12. ZOLPIDEM [Concomitant]
     Dosage: FOR MORE THAN 6 MONTHS
  13. DI-ANTALVIC [Concomitant]
  14. GINKOR [Concomitant]

REACTIONS (2)
  - CONDITION AGGRAVATED [None]
  - POLYNEUROPATHY [None]
